FAERS Safety Report 6241865-0 (Version None)
Quarter: 2009Q2

REPORT INFORMATION
  Report Type: 
  Country: None (occurrence: None)
  Receive Date: 20090623
  Receipt Date: 20090611
  Transmission Date: 20091009
  Serious: Yes (Death)
  Sender: FDA-Public Use
  Company Number: KR-PFIZER INC-2009226783

PATIENT
  Age: 62 Year

DRUGS (4)
  1. VORICONAZOLE [Suspect]
     Indication: ASPERGILLOSIS
     Dosage: 300 MG, 2X/DAY
     Route: 042
     Dates: start: 20061014, end: 20061019
  2. FAMOTIDINE [Concomitant]
     Indication: DYSPEPSIA
     Dosage: 40 MG, 2X/DAY
     Route: 042
     Dates: start: 20061008, end: 20061019
  3. FILGRASTIM [Concomitant]
     Indication: PROPHYLAXIS
     Dosage: 300 MCG, UNK
     Route: 042
     Dates: start: 20061003, end: 20061018
  4. CEFEPIME [Concomitant]
     Indication: PROPHYLAXIS
     Dosage: 6 G, 3X/DAY
     Route: 042
     Dates: start: 20061012, end: 20061019

REACTIONS (1)
  - SEPTIC SHOCK [None]
